FAERS Safety Report 7934802-1 (Version None)
Quarter: 2011Q4

REPORT INFORMATION
  Report Type: 
  Country: None (occurrence: None)
  Receive Date: 20111122
  Receipt Date: 20111115
  Transmission Date: 20120403
  Serious: Yes (Hospitalization, Other)
  Sender: FDA-Public Use
  Company Number: US-PURDUE-USA-2011-0073962

PATIENT
  Sex: Male

DRUGS (9)
  1. BUTRANS [Suspect]
     Indication: PAIN
     Dosage: 10 MCG/HR, Q1H
     Route: 062
     Dates: start: 20110720, end: 20110826
  2. BUTRANS [Suspect]
     Dosage: 5 MCG/HR, Q1H
     Route: 062
     Dates: start: 20110815, end: 20110826
  3. TRAZODONE HCL [Concomitant]
     Indication: SLEEP DISORDER
  4. NORCO [Concomitant]
     Indication: PRODUCT USED FOR UNKNOWN INDICATION
     Dosage: 10 MG, Q6H
  5. TRAZODONE HCL [Concomitant]
     Indication: MENTAL DISORDER
     Dosage: 100 MG, DAILY
     Route: 048
  6. HYDROXYZINE [Concomitant]
     Indication: PRODUCT USED FOR UNKNOWN INDICATION
     Dosage: 25 MG, Q6H
  7. DOC-Q-LACE [Concomitant]
     Indication: PRODUCT USED FOR UNKNOWN INDICATION
     Dosage: 100 MG, Q8H
  8. BACLOFEN [Concomitant]
     Indication: PRODUCT USED FOR UNKNOWN INDICATION
     Dosage: 10 MG, Q8H
  9. PROZAC [Concomitant]
     Indication: MENTAL DISORDER
     Dosage: 20 MG, DAILY
     Route: 048

REACTIONS (9)
  - HYPOAESTHESIA [None]
  - HEADACHE [None]
  - NEUROLOGICAL SYMPTOM [None]
  - PARAESTHESIA [None]
  - DYSARTHRIA [None]
  - HALLUCINATION, AUDITORY [None]
  - INCORRECT DOSE ADMINISTERED [None]
  - CRYING [None]
  - MENTAL DISORDER [None]
